FAERS Safety Report 9473481 (Version 2)
Quarter: 2013Q3

REPORT INFORMATION
  Report Type: Spontaneous
  Country: US (occurrence: US)
  Receive Date: 20130823
  Receipt Date: 20130823
  Transmission Date: 20140515
  Serious: No
  Sender: FDA-Public Use
  Company Number: US-GALDERMA-US13000042

PATIENT
  Age: 47 Year
  Sex: Female

DRUGS (16)
  1. METROGEL (METRONIDAZOLE) GEL, 1% [Suspect]
     Indication: DERMATITIS
     Route: 061
     Dates: start: 20121229, end: 20121231
  2. METROGEL (METRONIDAZOLE) GEL, 1% [Suspect]
     Indication: ROSACEA
     Dates: start: 20130109, end: 20130109
  3. DOXYCYCLINE [Suspect]
     Indication: ROSACEA
     Dates: start: 20121229, end: 20121230
  4. DOXYCYCLINE [Suspect]
     Indication: DERMATITIS
  5. NYSTATIN AND TRIAMICOLONEACETONIDE [Concomitant]
     Indication: DERMATITIS
     Route: 061
     Dates: start: 2007
  6. NYSTATIN AND TRIAMICOLONEACETONIDE [Concomitant]
     Indication: ROSACEA
  7. PROTOPIC [Concomitant]
     Indication: DERMATITIS
     Dosage: 0.1%
     Route: 061
     Dates: start: 2007
  8. PLAQUENIL [Concomitant]
     Indication: SYSTEMIC LUPUS ERYTHEMATOSUS
     Route: 048
     Dates: start: 2004
  9. ENALAPRIL [Concomitant]
     Indication: RENAL IMPAIRMENT
     Route: 048
     Dates: start: 1990
  10. ASPIRIN [Concomitant]
     Route: 048
     Dates: start: 1990
  11. VITAMINS [Concomitant]
     Route: 048
  12. CALCIUM [Concomitant]
     Route: 048
  13. SYNTHROID [Concomitant]
     Indication: HYPOTHYROIDISM
     Route: 048
     Dates: start: 2005
  14. OVACE PLUS WASH [Concomitant]
     Indication: THERAPEUTIC SKIN CARE TOPICAL
     Route: 061
     Dates: start: 2007
  15. LOPOROX SHAMPOO [Concomitant]
     Dates: start: 2006
  16. GLUCOSAMINE CHONDROITIN [Concomitant]

REACTIONS (12)
  - Swelling face [Recovered/Resolved]
  - Rash pustular [Recovered/Resolved]
  - Rash papular [Recovered/Resolved]
  - Skin discomfort [Recovered/Resolved]
  - Erythema [Recovered/Resolved]
  - Pruritus [Recovered/Resolved]
  - Skin burning sensation [Recovered/Resolved]
  - Skin exfoliation [Recovered/Resolved]
  - Dry skin [Recovered/Resolved]
  - Dysgeusia [Recovered/Resolved]
  - Headache [Recovered/Resolved]
  - Off label use [Recovered/Resolved]
